FAERS Safety Report 19943581 (Version 1)
Quarter: 2021Q4

REPORT INFORMATION
  Report Type: Spontaneous
  Country: US (occurrence: US)
  Receive Date: 20211008
  Receipt Date: 20211008
  Transmission Date: 20220303
  Serious: No
  Sender: FDA-Public Use
  Company Number: None

PATIENT
  Age: 24 Year
  Sex: Female
  Weight: 69.75 kg

DRUGS (5)
  1. LOTRIMIN DAILY PREVENTION DEO [Suspect]
     Active Substance: TOLNAFTATE
     Indication: Tinea pedis
     Route: 061
     Dates: start: 20210916, end: 20211002
  2. JUNEL FE 1/20 [Concomitant]
     Active Substance: ETHINYL ESTRADIOL\NORETHINDRONE ACETATE
  3. TYLENOL [Concomitant]
     Active Substance: ACETAMINOPHEN
  4. VITAMINS [Concomitant]
     Active Substance: VITAMINS
  5. EQUATE LORATADINE [Concomitant]

REACTIONS (2)
  - Contusion [None]
  - Product quality issue [None]

NARRATIVE: CASE EVENT DATE: 20210929
